FAERS Safety Report 5900541-1 (Version None)
Quarter: 2008Q3

REPORT INFORMATION
  Report Type: 
  Country: None (occurrence: None)
  Receive Date: 20080926
  Receipt Date: 20080923
  Transmission Date: 20090109
  Serious: Yes (Other)
  Sender: FDA-Public Use
  Company Number: CN-B.I. PHARMACEUTICALS,INC./RIDGEFIELD-2008-DE-05619GD

PATIENT

DRUGS (1)
  1. CLONIDINE [Suspect]
     Indication: TIC
     Route: 062

REACTIONS (1)
  - CONVULSION [None]
